FAERS Safety Report 4848587-9 (Version None)
Quarter: 2005Q4

REPORT INFORMATION
  Report Type: 
  Country: None (occurrence: None)
  Receive Date: 20051205
  Receipt Date: 20051128
  Transmission Date: 20060501
  Serious: Yes (Hospitalization, Other)
  Sender: FDA-Public Use
  Company Number: HQWYE789201DEC05

PATIENT
  Age: 68 Year
  Sex: Male

DRUGS (5)
  1. TAZOCIN (PIPERACILLIN/TAZOBACTAM, INJECTION) [Suspect]
     Indication: OSTEOMYELITIS CHRONIC
     Dosage: 4.5 GRAMS EVERY 8  HOURS INTRAVENOUS
     Route: 042
     Dates: start: 20051102, end: 20051123
  2. OMEPRAZOLE [Suspect]
     Indication: PROPHYLAXIS AGAINST GASTROINTESTINAL ULCER
     Dosage: 20 MG DAILY ORAL
     Route: 048
     Dates: start: 20051102, end: 20051124
  3. SPIRONOLACTONE [Concomitant]
  4. DIGOXIN [Concomitant]
  5. VANCOMYCIN [Concomitant]

REACTIONS (2)
  - BONE MARROW TOXICITY [None]
  - RASH [None]
